FAERS Safety Report 4660168-9 (Version None)
Quarter: 2005Q2

REPORT INFORMATION
  Report Type: 
  Country: None (occurrence: None)
  Receive Date: 20050427
  Receipt Date: 20050223
  Transmission Date: 20051028
  Serious: No
  Sender: FDA-Public Use
  Company Number: 211892

PATIENT
  Age: 32 Year
  Sex: Female
  Weight: 96.1 kg

DRUGS (2)
  1. XOLAIR [Suspect]
     Dosage: 300 MG, 4/WEEK, SUBCUTANEOUS
     Route: 058
  2. NSAIDS (NON-STEROIDAL ANTI-INFLAMMATORY DRUG NOS) [Concomitant]

REACTIONS (1)
  - PETECHIAE [None]
